FAERS Safety Report 14619426 (Version 2)
Quarter: 2018Q1

REPORT INFORMATION
  Report Type: Spontaneous
  Country: CA (occurrence: CA)
  Receive Date: 20180309
  Receipt Date: 20180327
  Transmission Date: 20180509
  Serious: Yes (Other)
  Sender: FDA-Public Use
  Company Number: CA-PFIZER INC-2018092847

PATIENT
  Age: 54 Year
  Sex: Female

DRUGS (5)
  1. LEFLUNOMIDE. [Concomitant]
     Active Substance: LEFLUNOMIDE
     Dosage: 20 MG, DAILY
  2. METHOTREXATE SODIUM. [Suspect]
     Active Substance: METHOTREXATE SODIUM
     Dosage: UNK, WEEKLY
     Dates: start: 201708
  3. LIPITOR [Suspect]
     Active Substance: ATORVASTATIN CALCIUM
     Dosage: UNK
  4. SULFASALAZINE. [Suspect]
     Active Substance: SULFASALAZINE
     Dosage: UNK
  5. PLAQUENIL /00072602/ [Concomitant]
     Active Substance: HYDROXYCHLOROQUINE DIPHOSPHATE
     Dosage: 400 MG, 1X/DAY

REACTIONS (1)
  - Rheumatoid arthritis [Unknown]
